FAERS Safety Report 5833990-0 (Version None)
Quarter: 2008Q3

REPORT INFORMATION
  Report Type: 
  Country: None (occurrence: None)
  Receive Date: 20080801
  Receipt Date: 20080801
  Transmission Date: 20090109
  Serious: No
  Sender: FDA-Public Use
  Company Number: None

PATIENT
  Age: 32 Year
  Sex: Female
  Weight: 81.6475 kg

DRUGS (1)
  1. PROAIR PROAIR [Suspect]
     Indication: ASTHMA
     Dosage: 2 PUFFS AS NEEDED INHAL, SEVERAL TIMES A DAY
     Route: 055
     Dates: start: 20080713, end: 20080731

REACTIONS (2)
  - DRUG INEFFECTIVE [None]
  - THERAPEUTIC RESPONSE UNEXPECTED WITH DRUG SUBSTITUTION [None]
